FAERS Safety Report 24077913 (Version 1)
Quarter: 2024Q3

REPORT INFORMATION
  Report Type: Spontaneous
  Country: US (occurrence: US)
  Receive Date: 20240711
  Receipt Date: 20240711
  Transmission Date: 20241017
  Serious: No
  Sender: TAKEDA
  Company Number: US-TAKEDA-2024TUS067926

PATIENT
  Age: 68 Year
  Sex: Male

DRUGS (2)
  1. TRINTELLIX [Suspect]
     Active Substance: VORTIOXETINE HYDROBROMIDE
     Indication: Product used for unknown indication
     Dosage: 5 MILLIGRAM, QD
     Route: 065
  2. METHYLPHENIDATE [Concomitant]
     Active Substance: METHYLPHENIDATE
     Dosage: UNK

REACTIONS (10)
  - Palpitations [Unknown]
  - Vision blurred [Unknown]
  - Tinnitus [Unknown]
  - Akathisia [Unknown]
  - Muscle twitching [Unknown]
  - General physical condition abnormal [Unknown]
  - Anger [Unknown]
  - Hyperhidrosis [Unknown]
  - Irritability [Unknown]
  - Dizziness [Unknown]
